FAERS Safety Report 18208975 (Version 9)
Quarter: 2022Q1

REPORT INFORMATION
  Report Type: Spontaneous
  Country: US (occurrence: US)
  Receive Date: 20200828
  Receipt Date: 20220322
  Transmission Date: 20220423
  Serious: Yes (Other)
  Sender: FDA-Public Use
  Company Number: US-PFIZER INC-2020332338

PATIENT
  Age: 87 Year
  Sex: Female
  Weight: 41.73 kg

DRUGS (5)
  1. PREMARIN [Suspect]
     Active Substance: ESTROGENS, CONJUGATED
     Indication: Hormone replacement therapy
     Dosage: 0.625 MG, 1X/DAY
     Route: 048
     Dates: start: 1980
  2. ATENOLOL [Concomitant]
     Active Substance: ATENOLOL
     Indication: Hypertension
     Dosage: 25 MG, 2X/DAY
     Route: 048
  3. AMLODIPINE BESYLATE [Concomitant]
     Active Substance: AMLODIPINE BESYLATE
     Indication: Hypertension
     Dosage: 2.5 MG, 2X/DAY
     Route: 048
  4. LOSARTAN POTASSIUM [Concomitant]
     Active Substance: LOSARTAN POTASSIUM
     Indication: Hypertension
     Dosage: 50 MG, 2X/DAY
     Route: 048
  5. KLOR-CON [Concomitant]
     Active Substance: POTASSIUM CHLORIDE
     Indication: Hypokalaemia
     Dosage: UNK, 2X/DAY
     Route: 048

REACTIONS (8)
  - Epiretinal membrane [Unknown]
  - Cataract [Unknown]
  - Therapeutic response unexpected [Unknown]
  - Eye disorder [Unknown]
  - Contusion [Unknown]
  - Visual impairment [Unknown]
  - Intentional product misuse [Unknown]
  - Condition aggravated [Unknown]
